FAERS Safety Report 9717052 (Version 1)
Quarter: 2013Q4

REPORT INFORMATION
  Report Type: Spontaneous
  Country: US (occurrence: US)
  Receive Date: 20131127
  Receipt Date: 20131127
  Transmission Date: 20140711
  Serious: No
  Sender: FDA-Public Use
  Company Number: US-GILEAD-2009-0020736

PATIENT
  Sex: Female

DRUGS (15)
  1. LETAIRIS [Suspect]
     Indication: PULMONARY ARTERIAL HYPERTENSION
     Route: 048
     Dates: start: 20090217
  2. REVATIO [Concomitant]
  3. WARFARIN [Concomitant]
  4. AGRYLIN [Concomitant]
  5. LASIX [Concomitant]
  6. METOPROLOL [Concomitant]
  7. SINGULAIR [Concomitant]
  8. TIKOSYN [Concomitant]
  9. POTASSIUM [Concomitant]
  10. MERCAPTOPURINE [Concomitant]
  11. ASACOL [Concomitant]
  12. CITALOPRAM [Concomitant]
  13. ZOLPIDEM [Concomitant]
  14. LEVOTHYROXINE [Concomitant]
  15. PROTONIX [Concomitant]

REACTIONS (3)
  - Fatigue [Unknown]
  - Oedema peripheral [Unknown]
  - Dyspnoea [Unknown]
